FAERS Safety Report 12166577 (Version 6)
Quarter: 2017Q1

REPORT INFORMATION
  Report Type: Report from Study
  Country: US (occurrence: US)
  Receive Date: 20160309
  Receipt Date: 20170329
  Transmission Date: 20170428
  Serious: Yes (Hospitalization)
  Sender: FDA-Public Use
  Company Number: PHHO2016US001704

PATIENT
  Age: 22 Year
  Sex: Female
  Weight: 64.1 kg

DRUGS (4)
  1. CERTICAN [Suspect]
     Active Substance: EVEROLIMUS
     Indication: RENAL TRANSPLANT
     Dosage: 2.25 MG, BID
     Route: 048
     Dates: start: 20151116
  2. PROGRAF [Suspect]
     Active Substance: TACROLIMUS\TACROLIMUS ANHYDROUS
     Indication: RENAL TRANSPLANT
     Dosage: 5 MG, BID
     Route: 048
     Dates: start: 20151116
  3. THYMOGLOBULIN [Suspect]
     Active Substance: LAPINE T-LYMPHOCYTE IMMUNE GLOBULIN
     Indication: PRODUCT USED FOR UNKNOWN INDICATION
     Route: 065
  4. PREDNISONE. [Suspect]
     Active Substance: PREDNISONE
     Indication: RENAL TRANSPLANT
     Dosage: 10 MG, QD
     Route: 048
     Dates: start: 20151116

REACTIONS (4)
  - Blood creatinine increased [Recovered/Resolved]
  - Groin abscess [Recovered/Resolved]
  - Pyelonephritis [Unknown]
  - Pneumonia [Recovered/Resolved]

NARRATIVE: CASE EVENT DATE: 20160129
